FAERS Safety Report 14424918 (Version 1)
Quarter: 2018Q1

REPORT INFORMATION
  Report Type: Spontaneous
  Country: US (occurrence: US)
  Receive Date: 20180123
  Receipt Date: 20180123
  Transmission Date: 20180509
  Serious: Yes (Other)
  Sender: FDA-Public Use
  Company Number: US-OTSUKA-2018_000550

PATIENT

DRUGS (4)
  1. REXULTI [Suspect]
     Active Substance: BREXPIPRAZOLE
     Indication: PRODUCT USED FOR UNKNOWN INDICATION
     Dosage: UNK
     Route: 065
  2. PRAZOSIN. [Concomitant]
     Active Substance: PRAZOSIN
     Indication: HYPERTENSION
     Dosage: UNK
     Route: 065
  3. PRAZOSIN. [Concomitant]
     Active Substance: PRAZOSIN
     Indication: SLEEP DISORDER
  4. GEODON [Concomitant]
     Active Substance: ZIPRASIDONE HYDROCHLORIDE\ZIPRASIDONE MESYLATE
     Indication: PRODUCT USED FOR UNKNOWN INDICATION
     Dosage: UNK
     Route: 065

REACTIONS (7)
  - Anxiety [Unknown]
  - Delusion [Unknown]
  - Hallucination, auditory [Unknown]
  - Suicidal ideation [Unknown]
  - Hallucination [Unknown]
  - Insomnia [Unknown]
  - Post-traumatic stress disorder [Unknown]
